FAERS Safety Report 26131759 (Version 1)
Quarter: 2025Q4

REPORT INFORMATION
  Report Type: Spontaneous
  Country: US (occurrence: US)
  Receive Date: 20251208
  Receipt Date: 20251208
  Transmission Date: 20260118
  Serious: No
  Sender: ABBVIE
  Company Number: US-ABBVIE-6576217

PATIENT
  Age: 31 Year
  Sex: Male

DRUGS (3)
  1. BOTOX COSMETIC [Suspect]
     Active Substance: ONABOTULINUMTOXINA
     Indication: Product used for unknown indication
     Dosage: TIME INTERVAL: AS NECESSARY
     Route: 065
     Dates: start: 20251125, end: 20251125
  2. BOTOX COSMETIC [Suspect]
     Active Substance: ONABOTULINUMTOXINA
     Indication: Product used for unknown indication
     Dosage: TIME INTERVAL: AS NECESSARY
     Route: 065
     Dates: start: 20251125, end: 20251125
  3. BOTOX COSMETIC [Suspect]
     Active Substance: ONABOTULINUMTOXINA
     Indication: Product used for unknown indication
     Dosage: TIME INTERVAL: AS NECESSARY: 4 UNITS IN 1 LINE OF CROWS FEET
     Route: 065
     Dates: start: 20251125, end: 20251125

REACTIONS (4)
  - Ocular discomfort [Unknown]
  - Headache [Unknown]
  - Vomiting [Unknown]
  - Impaired work ability [Unknown]

NARRATIVE: CASE EVENT DATE: 20250101
